FAERS Safety Report 7294248-9 (Version None)
Quarter: 2011Q1

REPORT INFORMATION
  Report Type: 
  Country: None (occurrence: None)
  Receive Date: 20110215
  Receipt Date: 20110127
  Transmission Date: 20110831
  Serious: Yes (Hospitalization)
  Sender: FDA-Public Use
  Company Number: US-B.I. PHARMACEUTICALS,INC./RIDGEFIELD-2011-BP-01642BP

PATIENT
  Age: 83 Year
  Sex: Female

DRUGS (14)
  1. ADVAIR [Concomitant]
     Indication: ASTHMA
  2. IRON [Concomitant]
     Indication: PROPHYLAXIS
  3. ANTIVERT [Concomitant]
     Indication: VERTIGO
  4. LOPRESSOR [Concomitant]
     Indication: HYPERTENSION
  5. COLACE [Concomitant]
     Indication: CONSTIPATION
  6. PRADAXA [Suspect]
     Indication: CEREBROVASCULAR ACCIDENT
     Dosage: 300 MG
     Dates: start: 20110103
  7. PRADAXA [Suspect]
     Indication: ATRIAL FIBRILLATION
  8. LASIX [Concomitant]
     Indication: OEDEMA PERIPHERAL
  9. PREVACID [Concomitant]
     Indication: GASTROINTESTINAL HAEMORRHAGE
  10. ZOLOFT [Concomitant]
     Indication: DEPRESSION
  11. POTASSIUM [Concomitant]
     Indication: PROPHYLAXIS
  12. VYTORIN [Concomitant]
     Indication: BLOOD CHOLESTEROL INCREASED
  13. SYNTHROID [Concomitant]
     Indication: HYPOTHYROIDISM
  14. MULTAQ [Concomitant]
     Indication: ATRIAL FIBRILLATION

REACTIONS (1)
  - HAEMOGLOBIN DECREASED [None]
